FAERS Safety Report 6912181-6 (Version None)
Quarter: 2010Q3

REPORT INFORMATION
  Report Type: 
  Country: None (occurrence: None)
  Receive Date: 20100806
  Receipt Date: 20071211
  Transmission Date: 20110219
  Serious: Yes (Other)
  Sender: FDA-Public Use
  Company Number: US-PFIZER INC-2007104947

PATIENT
  Sex: Female
  Weight: 74.545 kg

DRUGS (1)
  1. DILANTIN [Suspect]
     Indication: EPILEPSY
     Dates: start: 19750101

REACTIONS (2)
  - HYPERSENSITIVITY [None]
  - PRURITUS [None]
